FAERS Safety Report 10162177 (Version 1)
Quarter: 2014Q2

REPORT INFORMATION
  Report Type: Spontaneous
  Country: US (occurrence: None)
  Receive Date: 20140507
  Receipt Date: 20140507
  Transmission Date: 20141212
  Serious: Yes (Hospitalization)
  Sender: FDA-Public Use
  Company Number: SYM-2014-20449

PATIENT
  Age: 72 Year
  Sex: Female

DRUGS (1)
  1. XENAZINE [Suspect]
     Indication: PRODUCT USED FOR UNKNOWN INDICATION
     Dosage: 25MG, 2 IN 1 D, ORAL
     Route: 048

REACTIONS (1)
  - Investigation [None]
